FAERS Safety Report 10072060 (Version 1)
Quarter: 2014Q2

REPORT INFORMATION
  Report Type: Spontaneous
  Country: PT (occurrence: None)
  Receive Date: 20140409
  Receipt Date: 20140409
  Transmission Date: 20141212
  Serious: Yes (Hospitalization, Other)
  Sender: FDA-Public Use
  Company Number: NSR_01533_2014

PATIENT
  Age: 39 Year
  Sex: Male

DRUGS (2)
  1. ALLOPURINOL (ALLOPURINOL) [Suspect]
     Indication: HYPERURICAEMIA
     Dosage: (DF)
  2. ATORVASTATIN (ATORVASTATIN) [Suspect]
     Indication: DYSLIPIDAEMIA
     Dosage: (DF)

REACTIONS (1)
  - Acute generalised exanthematous pustulosis [None]
